FAERS Safety Report 4926137-6 (Version None)
Quarter: 2006Q1

REPORT INFORMATION
  Report Type: 
  Country: None (occurrence: None)
  Receive Date: 20060228
  Receipt Date: 20050825
  Transmission Date: 20060701
  Serious: No
  Sender: FDA-Public Use
  Company Number: US-GLAXOSMITHKLINE-A0571847A

PATIENT
  Age: 60 Year
  Sex: Male

DRUGS (10)
  1. LAMICTAL [Suspect]
     Indication: BIPOLAR DISORDER
     Dosage: 50MG PER DAY
     Route: 048
     Dates: start: 20050731
  2. VASOTEC RPD [Concomitant]
  3. SYNTHROID [Concomitant]
  4. NEXIUM [Concomitant]
  5. LIPITOR [Concomitant]
  6. ECOTRIN [Concomitant]
  7. VESICARE [Concomitant]
  8. KLONOPIN [Concomitant]
  9. OXYBUTYNIN [Concomitant]
     Route: 065
  10. PLAVIX [Concomitant]

REACTIONS (1)
  - OEDEMA PERIPHERAL [None]
